FAERS Safety Report 23991109 (Version 3)
Quarter: 2024Q2

REPORT INFORMATION
  Report Type: Report from Study
  Country: US (occurrence: US)
  Receive Date: 20240619
  Receipt Date: 20240628
  Transmission Date: 20240716
  Serious: Yes (Hospitalization)
  Sender: FDA-Public Use
  Company Number: US-JNJFOC-20240613415

PATIENT
  Age: 61 Year
  Sex: Male
  Weight: 131.8 kg

DRUGS (21)
  1. SELEXIPAG [Suspect]
     Active Substance: SELEXIPAG
     Indication: Pulmonary hypertension
     Dosage: UPTRAVI DOSE 1200 MCG IN AM AND 1400 MCG IN PM
     Route: 048
  2. SELEXIPAG [Suspect]
     Active Substance: SELEXIPAG
     Route: 048
  3. REMODULIN [Suspect]
     Active Substance: TREPROSTINIL
     Indication: Pulmonary hypertension
     Route: 058
     Dates: start: 20240604
  4. REMODULIN [Suspect]
     Active Substance: TREPROSTINIL
     Dosage: SELF FILL WITH 2.7ML PER CASSETTE; PUMP RATE OF 31MCL PER HOUR
     Route: 058
  5. AMBRISENTAN [Concomitant]
     Active Substance: AMBRISENTAN
  6. TADALAFIL [Concomitant]
     Active Substance: TADALAFIL
  7. XANAX [Concomitant]
     Active Substance: ALPRAZOLAM
  8. ACETAMINOPHEN\HYDROCODONE [Concomitant]
     Active Substance: ACETAMINOPHEN\HYDROCODONE
  9. POTASSIUM CHLORIDE [Concomitant]
     Active Substance: POTASSIUM CHLORIDE
  10. TESTOSTERONE CYPIONATE [Concomitant]
     Active Substance: TESTOSTERONE CYPIONATE
  11. SODIUM CHLORIDE [Concomitant]
     Active Substance: SODIUM CHLORIDE
  12. HERBALS\PLANTAGO OVATA LEAF [Concomitant]
     Active Substance: HERBALS\PLANTAGO OVATA LEAF
  13. SERTRALINE HYDROCHLORIDE [Concomitant]
     Active Substance: SERTRALINE HYDROCHLORIDE
  14. ATORVASTATIN CALCIUM [Concomitant]
     Active Substance: ATORVASTATIN CALCIUM
  15. MAGNESIUM [Concomitant]
     Active Substance: MAGNESIUM
  16. OMEPRAZOLE [Concomitant]
     Active Substance: DONEPEZIL HYDROCHLORIDE\OMEPRAZOLE\OMEPRAZOLE MAGNESIUM
  17. ASPIRIN [Concomitant]
     Active Substance: ASPIRIN
  18. SPIRONOLACTONE [Concomitant]
     Active Substance: SPIRONOLACTONE
  19. OXYGEN [Concomitant]
     Active Substance: OXYGEN
  20. IBUPROFEN [Concomitant]
     Active Substance: IBUPROFEN
  21. TORSEMIDE [Concomitant]
     Active Substance: TORSEMIDE

REACTIONS (11)
  - Therapy change [Unknown]
  - Headache [Unknown]
  - Flushing [Unknown]
  - Cellulitis [Not Recovered/Not Resolved]
  - Arthralgia [Unknown]
  - Pain [Unknown]
  - Road traffic accident [Unknown]
  - Nausea [Unknown]
  - Injection site pain [Unknown]
  - Diarrhoea [Unknown]
  - Infusion site erythema [Unknown]

NARRATIVE: CASE EVENT DATE: 20240101
